FAERS Safety Report 6415913-9 (Version None)
Quarter: 2009Q4

REPORT INFORMATION
  Report Type: 
  Country: None (occurrence: None)
  Receive Date: 20091027
  Receipt Date: 20091021
  Transmission Date: 20100525
  Serious: Yes (Other)
  Sender: FDA-Public Use
  Company Number: A0812793A

PATIENT
  Sex: Female

DRUGS (2)
  1. LAMICTAL [Suspect]
     Indication: BIPOLAR DISORDER
     Dosage: 200MG TWICE PER DAY
     Route: 048
  2. UNKNOWN [Concomitant]
     Indication: ANXIETY

REACTIONS (3)
  - AMNESIA [None]
  - PARAESTHESIA [None]
  - TOURETTE'S DISORDER [None]
